FAERS Safety Report 6151074-1 (Version None)
Quarter: 2009Q2

REPORT INFORMATION
  Report Type: 
  Country: None (occurrence: None)
  Receive Date: 20090410
  Receipt Date: 20090401
  Transmission Date: 20091009
  Serious: Yes (Other)
  Sender: FDA-Public Use
  Company Number: US-JNJFOC-20090401500

PATIENT
  Sex: Female
  Weight: 68.04 kg

DRUGS (2)
  1. URISPAS [Suspect]
     Indication: BLADDER DISORDER
     Route: 048
  2. MULTI-VITAMINS [Concomitant]
     Indication: GENERAL PHYSICAL CONDITION
     Route: 048

REACTIONS (7)
  - CYSTITIS [None]
  - DEPRESSION [None]
  - HOT FLUSH [None]
  - INSOMNIA [None]
  - URINARY TRACT INJURY [None]
  - VULVOVAGINAL PAIN [None]
  - WEIGHT DECREASED [None]
